FAERS Safety Report 9618423 (Version 3)
Quarter: 2013Q4

REPORT INFORMATION
  Report Type: Report from Study
  Country: DE (occurrence: DE)
  Receive Date: 20131014
  Receipt Date: 20131202
  Transmission Date: 20140711
  Serious: Yes (Hospitalization)
  Sender: FDA-Public Use
  Company Number: DE-CELGENEUS-062-C4047-13081477

PATIENT
  Age: 62 Year
  Sex: Female
  Weight: 58 kg

DRUGS (30)
  1. CC-4047 [Suspect]
     Indication: PLASMA CELL MYELOMA
     Dosage: 4 MILLIGRAM
     Route: 048
     Dates: start: 20130426, end: 20130523
  2. CC-4047 [Suspect]
     Dosage: 4 MILLIGRAM
     Route: 048
     Dates: start: 20130719, end: 20130815
  3. CC-4047 [Suspect]
     Route: 048
     Dates: end: 20130816
  4. CC-4047 [Suspect]
     Route: 048
     Dates: start: 20130827
  5. DEXAMETHASONE [Suspect]
     Indication: PLASMA CELL MYELOMA
     Dosage: 40 MILLIGRAM
     Route: 065
     Dates: start: 20130426, end: 20130523
  6. DEXAMETHASONE [Suspect]
     Dosage: 40 MILLIGRAM
     Route: 065
     Dates: start: 20130719, end: 20130819
  7. DEXAMETHASONE [Suspect]
     Route: 065
     Dates: end: 20130816
  8. DEXAMETHASONE [Suspect]
     Route: 065
     Dates: start: 20130827
  9. ANTITHROMBOTIC AGENT [Concomitant]
     Indication: THROMBOSIS PROPHYLAXIS
     Route: 065
  10. ACICLOVIR [Concomitant]
     Indication: PROPHYLAXIS
     Dosage: 800 MILLIGRAM
     Route: 065
     Dates: start: 20121206, end: 20130923
  11. VORICONAZOLE [Concomitant]
     Indication: INFECTION PROPHYLAXIS
     Dosage: 200 MILLIGRAM
     Route: 065
     Dates: start: 20130830, end: 20130923
  12. VORICONAZOLE [Concomitant]
     Dosage: 200 MILLIGRAM
     Route: 065
     Dates: start: 20130816, end: 20130822
  13. INTRATECT [Concomitant]
     Indication: SUPPLEMENTATION THERAPY
     Route: 065
  14. ENOXAPARIN-NATRIUM [Concomitant]
     Indication: THROMBOSIS PROPHYLAXIS
     Route: 065
     Dates: start: 20120425
  15. COLECALCIFEROL [Concomitant]
     Indication: VITAMIN D
     Route: 065
     Dates: start: 20120720
  16. BUTYLSCOPOLAMIN [Concomitant]
     Indication: DIARRHOEA
     Route: 065
     Dates: start: 20120920, end: 20130705
  17. ZOLPIDEM [Concomitant]
     Indication: SLEEP DISORDER
     Route: 065
     Dates: start: 20121004
  18. MOVICOL [Concomitant]
     Indication: CONSTIPATION
     Route: 065
     Dates: start: 20130414, end: 20130811
  19. MOVICOL [Concomitant]
     Route: 065
     Dates: start: 20130924
  20. ZOLEDRONIC ACID [Concomitant]
     Indication: BONE DISORDER
     Route: 065
     Dates: start: 201112
  21. IMMUNOGLOBULIN [Concomitant]
     Indication: INFECTION PROPHYLAXIS
     Route: 065
     Dates: start: 201112
  22. MORPHIUM [Concomitant]
     Indication: BACK PAIN
     Route: 065
     Dates: start: 20110404
  23. MORPHIUM [Concomitant]
     Indication: CHEST PAIN
  24. COTRIMOXAZOLE [Concomitant]
     Indication: INFECTION PROPHYLAXIS
     Route: 065
     Dates: start: 20130426, end: 20130802
  25. MORPHIN ULFAT [Concomitant]
     Indication: BACK PAIN
     Route: 065
     Dates: start: 20120808
  26. MORPHIN ULFAT [Concomitant]
     Indication: CHEST PAIN
  27. FLUCONAZOLE [Concomitant]
     Indication: INFECTION PROPHYLAXIS
     Route: 065
     Dates: start: 20130525, end: 20130802
  28. FLUCONAZOLE [Concomitant]
     Route: 065
     Dates: start: 20130924
  29. FILGRASTIM [Concomitant]
     Indication: NEUTROPENIA
     Route: 065
     Dates: start: 20130607, end: 20130811
  30. FILGRASTIM [Concomitant]
     Route: 065
     Dates: start: 20130924

REACTIONS (4)
  - Pneumonia [Recovered/Resolved]
  - C-reactive protein increased [Recovered/Resolved]
  - Pleuritic pain [Recovered/Resolved]
  - Pyrexia [Recovered/Resolved]
